FAERS Safety Report 6819696-X (Version None)
Quarter: 2010Q2

REPORT INFORMATION
  Report Type: 
  Country: None (occurrence: None)
  Receive Date: 20100630
  Receipt Date: 20100622
  Transmission Date: 20101027
  Serious: Yes (Hospitalization)
  Sender: FDA-Public Use
  Company Number: 1000014676

PATIENT
  Sex: Female

DRUGS (3)
  1. SAVELLA [Suspect]
     Dosage: SEE IMAGE
     Route: 048
  2. SAVELLA [Suspect]
     Dosage: SEE IMAGE
     Route: 048
  3. SAVELLA [Suspect]
     Dosage: SEE IMAGE
     Route: 048

REACTIONS (1)
  - CONFUSIONAL STATE [None]
